FAERS Safety Report 9517939 (Version 1)
Quarter: 2013Q3

REPORT INFORMATION
  Report Type: Spontaneous
  Country: RO (occurrence: None)
  Receive Date: 20130910
  Receipt Date: 20130910
  Transmission Date: 20140515
  Serious: Yes (Other)
  Sender: FDA-Public Use
  Company Number: 2013P1019034

PATIENT
  Age: 10 Day
  Sex: Female

DRUGS (2)
  1. GENTAMYCIN [Suspect]
     Indication: PYELONEPHRITIS
  2. AMPICIILLIN [Concomitant]

REACTIONS (6)
  - Hyponatraemia [None]
  - Metabolic acidosis [None]
  - Renal failure acute [None]
  - Renal tubular necrosis [None]
  - Peritoneal dialysis [None]
  - Nephropathy toxic [None]
